FAERS Safety Report 22597409 (Version 1)
Quarter: 2023Q2

REPORT INFORMATION
  Report Type: Spontaneous
  Country: US (occurrence: None)
  Receive Date: 20230614
  Receipt Date: 20230614
  Transmission Date: 20230722
  Serious: Yes (Other)
  Sender: FDA-Public Use
  Company Number: US-ARIS GLOBAL-AXS202303-000415

PATIENT
  Age: 40 Year
  Sex: Female

DRUGS (5)
  1. AUVELITY [Suspect]
     Active Substance: BUPROPION HYDROCHLORIDE\DEXTROMETHORPHAN HYDROBROMIDE
     Indication: Major depression
     Dosage: UNK
     Route: 048
     Dates: start: 202210, end: 20230308
  2. AMANTADINE [Concomitant]
     Active Substance: AMANTADINE
     Indication: Product used for unknown indication
     Dosage: UNK
     Route: 065
     Dates: end: 202301
  3. OXCARBAZEPINE [Concomitant]
     Active Substance: OXCARBAZEPINE
     Indication: Product used for unknown indication
     Dosage: UNK
     Route: 065
  4. TOPAMAX [Concomitant]
     Active Substance: TOPIRAMATE
     Indication: Product used for unknown indication
     Dosage: UNK
     Route: 065
  5. CHLORDIAZEPOXIDE [Concomitant]
     Active Substance: CHLORDIAZEPOXIDE
     Indication: Product used for unknown indication
     Dosage: UNK
     Route: 065

REACTIONS (12)
  - Hallucination, olfactory [Unknown]
  - Hallucination, visual [Unknown]
  - Hallucination, tactile [Unknown]
  - Hallucination, auditory [Unknown]
  - Burning sensation [Unknown]
  - Affective disorder [Not Recovered/Not Resolved]
  - Psychogenic seizure [Unknown]
  - Abdominal distension [Unknown]
  - Dyspnoea [Unknown]
  - Visual impairment [Unknown]
  - Post-traumatic stress disorder [Not Recovered/Not Resolved]
  - Product prescribing error [Unknown]
